FAERS Safety Report 23550528 (Version 1)
Quarter: 2024Q1

REPORT INFORMATION
  Report Type: Other
  Country: PT (occurrence: None)
  Receive Date: 20240221
  Receipt Date: 20240221
  Transmission Date: 20240410
  Serious: Yes (Hospitalization, Other)
  Sender: FDA-Public Use
  Company Number: PT-Invatech-000329

PATIENT
  Age: 77 Year
  Sex: Female

DRUGS (2)
  1. NAPROXEN SODIUM [Suspect]
     Active Substance: NAPROXEN\NAPROXEN SODIUM
     Indication: Arthralgia
  2. CELECOXIB [Suspect]
     Active Substance: CELECOXIB
     Indication: Arthralgia

REACTIONS (1)
  - Eosinophilic pneumonia acute [Recovered/Resolved]
